FAERS Safety Report 4650986-5 (Version None)
Quarter: 2005Q2

REPORT INFORMATION
  Report Type: 
  Country: None (occurrence: None)
  Receive Date: 20050503
  Receipt Date: 20050428
  Transmission Date: 20051028
  Serious: Yes (Hospitalization)
  Sender: FDA-Public Use
  Company Number: US-MERCK-0504USA05068

PATIENT
  Age: 90 Year
  Sex: Female

DRUGS (9)
  1. FOSAMAX [Suspect]
     Indication: OSTEOPOROSIS
     Route: 048
     Dates: start: 20050201
  2. RELAFEN [Concomitant]
     Route: 065
  3. ASPIRIN [Concomitant]
     Route: 065
  4. COZAAR [Concomitant]
     Route: 048
  5. LEVOTHROID [Concomitant]
     Route: 065
  6. FUROSEMIDE [Concomitant]
     Route: 065
  7. ATENOLOL [Concomitant]
     Route: 065
  8. MEVACOR [Concomitant]
     Route: 048
  9. MINITRAN [Concomitant]
     Route: 065

REACTIONS (5)
  - BACK PAIN [None]
  - BLOOD SODIUM DECREASED [None]
  - CONSTIPATION [None]
  - FLUID RETENTION [None]
  - NAUSEA [None]
